FAERS Safety Report 14487694 (Version 1)
Quarter: 2018Q1

REPORT INFORMATION
  Report Type: Report from Study
  Country: US (occurrence: US)
  Receive Date: 20180205
  Receipt Date: 20180205
  Transmission Date: 20180509
  Serious: Yes (Other)
  Sender: FDA-Public Use
  Company Number: PHEH2018US003618

PATIENT
  Sex: Female

DRUGS (4)
  1. LOSARTAN. [Concomitant]
     Active Substance: LOSARTAN
     Indication: PRODUCT USED FOR UNKNOWN INDICATION
     Route: 065
  2. TASIGNA [Suspect]
     Active Substance: NILOTINIB
     Indication: LEUKAEMIA
     Dosage: 150 MG, BID
     Route: 048
  3. FLAVIX [Concomitant]
     Indication: PRODUCT USED FOR UNKNOWN INDICATION
     Route: 065
  4. ATORVASTATIN [Concomitant]
     Active Substance: ATORVASTATIN
     Indication: PRODUCT USED FOR UNKNOWN INDICATION
     Route: 065

REACTIONS (10)
  - Feeling abnormal [Unknown]
  - Amnesia [Unknown]
  - Abdominal discomfort [Recovered/Resolved]
  - Vomiting [Unknown]
  - Weight decreased [Unknown]
  - Nausea [Unknown]
  - Confusional state [Unknown]
  - Abdominal pain upper [Unknown]
  - Cerebrovascular accident [Unknown]
  - Malaise [Unknown]
